FAERS Safety Report 18851306 (Version 1)
Quarter: 2021Q1

REPORT INFORMATION
  Report Type: Spontaneous
  Country: IL (occurrence: IL)
  Receive Date: 20210205
  Receipt Date: 20210205
  Transmission Date: 20210420
  Serious: Yes (Other)
  Sender: FDA-Public Use
  Company Number: IL-TEVA-2021-IL-1876377

PATIENT
  Age: 30 Year
  Sex: Female

DRUGS (1)
  1. DEXTROAMPHET SACCHARAT, AMPHET ASPARTATE, DEXTROAMPHET SULFATE AND AMPHET SULFAT [Suspect]
     Active Substance: AMPHETAMINE ASPARTATE\AMPHETAMINE SULFATE\DEXTROAMPHETAMINE SACCHARATE\DEXTROAMPHETAMINE SULFATE
     Indication: ATTENTION DEFICIT HYPERACTIVITY DISORDER
     Dosage: 20 OR 40 MG AS NEEDED
     Route: 065

REACTIONS (9)
  - Fatigue [Unknown]
  - Drug ineffective [Unknown]
  - Impaired quality of life [Unknown]
  - Depressed mood [Unknown]
  - Headache [Unknown]
  - Product taste abnormal [Unknown]
  - Mental disorder [Unknown]
  - Feeling abnormal [Unknown]
  - Major depression [Unknown]
